FAERS Safety Report 13939407 (Version 1)
Quarter: 2017Q3

REPORT INFORMATION
  Report Type: Spontaneous
  Country: US (occurrence: US)
  Receive Date: 20170906
  Receipt Date: 20170906
  Transmission Date: 20171127
  Serious: Yes (Other)
  Sender: FDA-Public Use
  Company Number: US-ACCORD-058111

PATIENT
  Age: 35 Year
  Sex: Female

DRUGS (11)
  1. CYCLOBENZAPRINE. [Suspect]
     Active Substance: CYCLOBENZAPRINE
     Indication: DIAPHRAGMATIC SPASM
  2. LEVETIRACETAM. [Suspect]
     Active Substance: LEVETIRACETAM
     Indication: DIAPHRAGMATIC SPASM
  3. LORAZEPAM. [Suspect]
     Active Substance: LORAZEPAM
     Indication: DIAPHRAGMATIC SPASM
  4. MYCOPHENOLIC ACID. [Suspect]
     Active Substance: MYCOPHENOLIC ACID
     Indication: DIAPHRAGMATIC SPASM
  5. IMMUNOGLOBULINS [Suspect]
     Active Substance: IMMUNE GLOBULIN NOS
     Indication: DIAPHRAGMATIC SPASM
     Route: 042
  6. TOPIRAMATE. [Suspect]
     Active Substance: TOPIRAMATE
     Indication: DIAPHRAGMATIC SPASM
  7. DIAZEPAM. [Suspect]
     Active Substance: DIAZEPAM
     Indication: DIAPHRAGMATIC SPASM
  8. GABAPENTIN. [Suspect]
     Active Substance: GABAPENTIN
     Indication: DIAPHRAGMATIC SPASM
  9. CLONAZEPAM. [Suspect]
     Active Substance: CLONAZEPAM
     Indication: DIAPHRAGMATIC SPASM
  10. RITUXIMAB. [Suspect]
     Active Substance: RITUXIMAB
     Indication: DIAPHRAGMATIC SPASM
  11. BACLOFEN. [Suspect]
     Active Substance: BACLOFEN
     Indication: DIAPHRAGMATIC SPASM

REACTIONS (5)
  - Hypersensitivity [Unknown]
  - Nausea [Unknown]
  - Off label use [Unknown]
  - Drug ineffective [Unknown]
  - Rash [Unknown]
